FAERS Safety Report 5997643-0 (Version None)
Quarter: 2008Q4

REPORT INFORMATION
  Report Type: 
  Country: None (occurrence: None)
  Receive Date: 20081212
  Receipt Date: 20081118
  Transmission Date: 20090506
  Serious: No
  Sender: FDA-Public Use
  Company Number: US-ABBOTT-08P-163-0488696-00

PATIENT
  Sex: Male
  Weight: 83.99 kg

DRUGS (7)
  1. HUMIRA [Suspect]
     Indication: CROHN'S DISEASE
     Route: 058
     Dates: start: 20071226, end: 20071226
  2. HUMIRA [Suspect]
     Route: 058
     Dates: start: 20080109
  3. HUMIRA [Suspect]
     Route: 058
  4. PENTESA [Concomitant]
     Indication: CROHN'S DISEASE
     Route: 048
  5. OXYCODONE HCL [Concomitant]
     Indication: PAIN
     Route: 050
  6. VICODIN [Concomitant]
     Indication: PAIN
     Dosage: UNKNOWN
     Route: 048
  7. ALPRAZOLAM [Concomitant]
     Indication: ANXIETY
     Route: 048

REACTIONS (1)
  - SINUSITIS [None]
